FAERS Safety Report 17108854 (Version 1)
Quarter: 2019Q4

REPORT INFORMATION
  Report Type: Spontaneous
  Country: US (occurrence: US)
  Receive Date: 20191203
  Receipt Date: 20191203
  Transmission Date: 20200122
  Serious: No
  Sender: FDA-Public Use
  Company Number: US-VIFOR (INTERNATIONAL) INC.-VIT-2019-12674

PATIENT
  Sex: Female

DRUGS (15)
  1. GARLIC OIL [Concomitant]
     Active Substance: GARLIC OIL
  2. CLONIDINE. [Concomitant]
     Active Substance: CLONIDINE
  3. FUROSEMIDE. [Concomitant]
     Active Substance: FUROSEMIDE
  4. NITROGLYCERIN. [Concomitant]
     Active Substance: NITROGLYCERIN
  5. VELTASSA [Suspect]
     Active Substance: PATIROMER
     Indication: HYPERKALAEMIA
     Route: 048
     Dates: start: 20170329
  6. HYDRALAZINE [Concomitant]
     Active Substance: HYDRALAZINE HYDROCHLORIDE
  7. ZETIA [Concomitant]
     Active Substance: EZETIMIBE
  8. RANITIDINE. [Concomitant]
     Active Substance: RANITIDINE
  9. BIOTIN [Concomitant]
     Active Substance: BIOTIN
  10. OMEGA-3 ACIDS [Concomitant]
     Active Substance: OMEGA-3 FATTY ACIDS
  11. ASPIRIN. [Concomitant]
     Active Substance: ASPIRIN
  12. ERGOCALCIFER [Concomitant]
  13. METOPROL TAR [Concomitant]
  14. PRAVASTATIN. [Concomitant]
     Active Substance: PRAVASTATIN
  15. PROMETHAZINE [Concomitant]
     Active Substance: PROMETHAZINE HYDROCHLORIDE

REACTIONS (1)
  - Flatulence [Not Recovered/Not Resolved]
